FAERS Safety Report 7137949-5 (Version None)
Quarter: 2010Q4

REPORT INFORMATION
  Report Type: 
  Country: None (occurrence: None)
  Receive Date: 20101206
  Receipt Date: 20101124
  Transmission Date: 20110411
  Serious: Yes (Hospitalization)
  Sender: FDA-Public Use
  Company Number: JP-SANOFI-AVENTIS-2010SA072986

PATIENT
  Age: 73 Year
  Sex: Male
  Weight: 46 kg

DRUGS (12)
  1. ELPLAT [Suspect]
     Indication: COLON CANCER
     Route: 042
     Dates: start: 20100910, end: 20100910
  2. ELPLAT [Suspect]
     Route: 042
     Dates: start: 20101022, end: 20101022
  3. TS-1 [Suspect]
     Indication: COLON CANCER
     Route: 048
     Dates: start: 20100910, end: 20100916
  4. TS-1 [Suspect]
     Route: 048
     Dates: start: 20101001, end: 20101101
  5. AVASTIN [Suspect]
     Indication: COLON CANCER
     Route: 041
     Dates: start: 20100910, end: 20100910
  6. AVASTIN [Suspect]
     Route: 041
     Dates: start: 20101022, end: 20101022
  7. FERROUS CITRATE [Concomitant]
     Route: 048
     Dates: start: 20100910
  8. LOPEMIN [Concomitant]
     Route: 048
     Dates: start: 20100917
  9. BIOFERMIN [Concomitant]
     Route: 048
     Dates: start: 20100917
  10. BIOFERMIN R [Concomitant]
     Route: 048
     Dates: start: 20101003
  11. ADALAT [Concomitant]
     Indication: BLOOD PRESSURE INCREASED
     Route: 048
     Dates: start: 20101108, end: 20101108
  12. BLOPRESS [Concomitant]
     Indication: BLOOD PRESSURE INCREASED
     Route: 048
     Dates: start: 20101109

REACTIONS (1)
  - GOUT [None]
